FAERS Safety Report 24914256 (Version 3)
Quarter: 2025Q1

REPORT INFORMATION
  Report Type: Report from Study
  Country: AT (occurrence: AT)
  Receive Date: 20250202
  Receipt Date: 20250321
  Transmission Date: 20250409
  Serious: Yes (Hospitalization, Other)
  Sender: ABBVIE
  Company Number: AT-ABBVIE-6113576

PATIENT
  Age: 55 Year
  Sex: Male

DRUGS (5)
  1. FOSCARBIDOPA\FOSLEVODOPA [Suspect]
     Active Substance: FOSCARBIDOPA\FOSLEVODOPA
     Indication: Parkinson^s disease
     Route: 058
     Dates: start: 20240910, end: 20250128
  2. FOSCARBIDOPA\FOSLEVODOPA [Suspect]
     Active Substance: FOSCARBIDOPA\FOSLEVODOPA
     Route: 058
  3. BENSERAZIDE HYDROCHLORIDE\LEVODOPA [Concomitant]
     Active Substance: BENSERAZIDE HYDROCHLORIDE\LEVODOPA
     Indication: Product used for unknown indication
  4. ELIQUIS [Concomitant]
     Active Substance: APIXABAN
     Indication: Product used for unknown indication
  5. ONGENTYS [Concomitant]
     Active Substance: OPICAPONE
     Indication: Product used for unknown indication

REACTIONS (14)
  - Deep brain stimulation [Recovered/Resolved]
  - Bifascicular block [Unknown]
  - Hypokinesia [Recovering/Resolving]
  - Knee operation [Unknown]
  - Aortic stenosis [Unknown]
  - Atrial fibrillation [Unknown]
  - Hallucination [Recovered/Resolved]
  - Cardiac pacemaker insertion [Unknown]
  - Back pain [Unknown]
  - Dyspnoea exertional [Unknown]
  - Cardiac arrest [Unknown]
  - Atrioventricular block complete [Unknown]
  - Syncope [Unknown]
  - Left ventricular hypertrophy [Unknown]

NARRATIVE: CASE EVENT DATE: 20240101
